FAERS Safety Report 5332717-9 (Version None)
Quarter: 2007Q2

REPORT INFORMATION
  Report Type: 
  Country: None (occurrence: None)
  Receive Date: 20070523
  Receipt Date: 20070514
  Transmission Date: 20071010
  Serious: Yes (Hospitalization)
  Sender: FDA-Public Use
  Company Number: FR-PFIZER INC-2007038402

PATIENT
  Age: 59 Year
  Sex: Male

DRUGS (6)
  1. IRINOTECAN HCL [Suspect]
     Dosage: DAILY DOSE:1600MG
     Route: 042
  2. FLUOROURACIL [Suspect]
     Dosage: DAILY DOSE:3800MG
     Route: 042
  3. FONDAPARINUX SODIUM [Suspect]
     Indication: THROMBOSIS
     Dosage: DAILY DOSE:7.5MG
     Route: 058
     Dates: start: 20070110, end: 20070317
  4. ASPIRIN [Concomitant]
  5. PERINDOPRIL ERBUMINE [Concomitant]
  6. VERAPAMIL HYDROCHLORIDE [Concomitant]

REACTIONS (1)
  - DERMATOMYOSITIS [None]
